FAERS Safety Report 6692526-5 (Version None)
Quarter: 2010Q2

REPORT INFORMATION
  Report Type: 
  Country: None (occurrence: None)
  Receive Date: 20100422
  Receipt Date: 20100414
  Transmission Date: 20101027
  Serious: Yes (Hospitalization)
  Sender: FDA-Public Use
  Company Number: B0648940A

PATIENT
  Age: 71 Year
  Sex: Female

DRUGS (1)
  1. AUGMENTIN '125' [Suspect]
     Indication: ERYSIPELOID
     Dosage: 1G SINGLE DOSE
     Route: 048
     Dates: start: 20100205, end: 20100205

REACTIONS (10)
  - ANGIOEDEMA [None]
  - DYSPNOEA [None]
  - EYELID OEDEMA [None]
  - HYPERSENSITIVITY [None]
  - LEUKOCYTOSIS [None]
  - LIP SWELLING [None]
  - PRURITUS [None]
  - RASH ERYTHEMATOUS [None]
  - RASH GENERALISED [None]
  - SWELLING FACE [None]
